FAERS Safety Report 5498461-2 (Version None)
Quarter: 2007Q4

REPORT INFORMATION
  Report Type: 
  Country: None (occurrence: None)
  Receive Date: 20071024
  Receipt Date: 20070420
  Transmission Date: 20080405
  Serious: No
  Sender: FDA-Public Use
  Company Number: 8023355

PATIENT
  Sex: Female
  Weight: 62.7 kg

DRUGS (3)
  1. THEO-24 [Suspect]
     Indication: ASTHMA
     Dosage: 300 MG
     Dates: start: 19820101
  2. SEREVENT [Concomitant]
  3. LOTENSIN [Concomitant]

REACTIONS (5)
  - AGITATION [None]
  - BLOOD PRESSURE FLUCTUATION [None]
  - HYPERTENSION [None]
  - PALPITATIONS [None]
  - WRONG TECHNIQUE IN DRUG USAGE PROCESS [None]
